FAERS Safety Report 8244782-X (Version None)
Quarter: 2012Q1

REPORT INFORMATION
  Report Type: 
  Country: None (occurrence: None)
  Receive Date: 20120329
  Receipt Date: 20110405
  Transmission Date: 20120608
  Serious: No
  Sender: FDA-Public Use
  Company Number: US-MYLANLABS-2011S1007221

PATIENT
  Age: 74 Year
  Sex: Female
  Weight: 61.24 kg

DRUGS (1)
  1. FENTANYL-100 [Suspect]
     Indication: NERVE INJURY
     Dosage: CHANGED Q 72 HOURS.
     Route: 062
     Dates: start: 20100101, end: 20101124

REACTIONS (5)
  - SKIN BURNING SENSATION [None]
  - DRUG WITHDRAWAL SYNDROME [None]
  - APPLICATION SITE ERYTHEMA [None]
  - PAIN IN EXTREMITY [None]
  - DRUG INEFFECTIVE [None]
